FAERS Safety Report 4759733-X (Version None)
Quarter: 2005Q3

REPORT INFORMATION
  Report Type: 
  Country: None (occurrence: None)
  Receive Date: 20050826
  Receipt Date: 20050630
  Transmission Date: 20060218
  Serious: No
  Sender: FDA-Public Use
  Company Number: 215408

PATIENT
  Age: 75 Year
  Sex: Male
  Weight: 70.3 kg

DRUGS (5)
  1. RAPTIVA [Suspect]
     Indication: PSORIASIS
     Dosage: 1/WEEK, INTRAMUSCULAR
     Route: 030
     Dates: start: 20050101, end: 20050616
  2. GLUCOVANCE [Concomitant]
  3. RAMIPRIL [Concomitant]
  4. AMLODIPINE BESYLATE [Concomitant]
  5. PIOGLITAZONE HCL [Concomitant]

REACTIONS (1)
  - HERPES ZOSTER [None]
